FAERS Safety Report 8537314-X (Version None)
Quarter: 2012Q3

REPORT INFORMATION
  Report Type: 
  Country: None (occurrence: None)
  Receive Date: 20120725
  Receipt Date: 20120628
  Transmission Date: 20120928
  Serious: No
  Sender: FDA-Public Use
  Company Number: US-ASTRAZENECA-2012SE43848

PATIENT
  Age: 35 Year
  Sex: Female
  Weight: 104.3 kg

DRUGS (3)
  1. TYLENOL [Concomitant]
     Indication: HYPERTENSION
     Dosage: PRN
  2. TOPROL-XL [Suspect]
     Indication: HYPERTENSION
     Route: 048
  3. METOPROLOL SUCCINATE [Suspect]
     Indication: HYPERTENSION
     Route: 048

REACTIONS (8)
  - VERTIGO [None]
  - FEELING ABNORMAL [None]
  - BLOOD PRESSURE FLUCTUATION [None]
  - PANIC ATTACK [None]
  - FATIGUE [None]
  - NAIL DISCOLOURATION [None]
  - ANXIETY [None]
  - PERIPHERAL COLDNESS [None]
